FAERS Safety Report 24825767 (Version 2)
Quarter: 2025Q1

REPORT INFORMATION
  Report Type: Spontaneous
  Country: US (occurrence: US)
  Receive Date: 20250109
  Receipt Date: 20250114
  Transmission Date: 20250408
  Serious: Yes (Hospitalization, Other)
  Sender: KARYOPHARM THERAPEUTICS
  Company Number: US-KARYOPHARM-2025KPT000023

PATIENT

DRUGS (19)
  1. XPOVIO [Suspect]
     Active Substance: SELINEXOR
     Indication: Plasma cell myeloma
     Dosage: 40 MG, WEEKLY
     Route: 048
     Dates: start: 20241212, end: 20250113
  2. ESCITALOPRAM [Concomitant]
     Active Substance: ESCITALOPRAM OXALATE
  3. FENOFIBRATE [Concomitant]
     Active Substance: FENOFIBRATE
  4. HYDROXYZINE [Concomitant]
     Active Substance: HYDROXYZINE HYDROCHLORIDE
  5. ALPRAZOLAM [Concomitant]
     Active Substance: ALPRAZOLAM
  6. REXULTI [Concomitant]
     Active Substance: BREXPIPRAZOLE
  7. ONDANSETRON [Concomitant]
     Active Substance: ONDANSETRON
  8. ASPIRIN [Concomitant]
     Active Substance: ASPIRIN
  9. OLANZAPINE [Concomitant]
     Active Substance: OLANZAPINE
  10. DEXAMETHASONE [Concomitant]
     Active Substance: DEXAMETHASONE
  11. ACYCLOVIR [Concomitant]
     Active Substance: ACYCLOVIR
  12. DULOXETINE [Concomitant]
     Active Substance: DULOXETINE
  13. NINLARO [Concomitant]
     Active Substance: IXAZOMIB CITRATE
  14. LANSOPRAZOLE [Concomitant]
     Active Substance: LANSOPRAZOLE
  15. PANTOPRAZOLE [Concomitant]
     Active Substance: PANTOPRAZOLE
  16. PIROXICAM [Concomitant]
     Active Substance: PIROXICAM
  17. TRAMADOL [Concomitant]
     Active Substance: TRAMADOL
  18. VARUBI [ROLAPITANT] [Concomitant]
  19. ZYPREXA [Concomitant]
     Active Substance: OLANZAPINE

REACTIONS (6)
  - Dementia [Not Recovered/Not Resolved]
  - Fall [Recovered/Resolved]
  - Diarrhoea [Recovering/Resolving]
  - Urinary tract infection [Recovering/Resolving]
  - Dehydration [Recovering/Resolving]
  - Decreased appetite [Unknown]

NARRATIVE: CASE EVENT DATE: 20250101
